FAERS Safety Report 22382423 (Version 1)
Quarter: 2023Q2

REPORT INFORMATION
  Report Type: Spontaneous
  Country: US (occurrence: US)
  Receive Date: 20230530
  Receipt Date: 20230530
  Transmission Date: 20230721
  Serious: Yes (Hospitalization, Other)
  Sender: FDA-Public Use
  Company Number: US-STERISCIENCE B.V.-2023-ST-001138

PATIENT
  Age: 59 Year
  Sex: Female

DRUGS (4)
  1. METOPROLOL [Suspect]
     Active Substance: METOPROLOL
     Indication: Pulmonary arterial hypertension
     Dosage: UNK
     Route: 065
  2. INSULIN NOS [Suspect]
     Active Substance: INSULIN NOS
     Indication: Hyperglycaemia
     Dosage: UNK
     Route: 065
  3. ALBUTEROL [Suspect]
     Active Substance: ALBUTEROL
     Indication: Pulmonary arterial hypertension
     Dosage: UNK
     Route: 065
  4. DILTIAZEM HYDROCHLORIDE [Suspect]
     Active Substance: DILTIAZEM HYDROCHLORIDE
     Indication: Pulmonary arterial hypertension
     Dosage: UNK
     Route: 065

REACTIONS (1)
  - Drug ineffective for unapproved indication [Unknown]
